FAERS Safety Report 26010810 (Version 1)
Quarter: 2025Q4

REPORT INFORMATION
  Report Type: Spontaneous
  Country: EU (occurrence: EU)
  Receive Date: 20251107
  Receipt Date: 20251107
  Transmission Date: 20260117
  Serious: Yes (Death, Hospitalization)
  Sender: DR REDDYS
  Company Number: None

PATIENT
  Age: 75 Year
  Sex: Female
  Weight: 63 kg

DRUGS (21)
  1. CAPECITABINE [Suspect]
     Active Substance: CAPECITABINE
     Indication: Colorectal cancer metastatic
     Dosage: ON DAY 1-14 OF EVERY CYCLE WITH 7 DAY PAUSE?23-DEC-2014
     Route: 048
     Dates: start: 20141223, end: 20150127
  2. CAPECITABINE [Suspect]
     Active Substance: CAPECITABINE
     Dosage: ON DAY 1-14 OF EVERY CYCLE WITH 7 DAYS PAUSE 03-FEB-2015
     Route: 048
     Dates: start: 20150203, end: 20150421
  3. CAPECITABINE [Suspect]
     Active Substance: CAPECITABINE
     Dosage: ON DAY 1-14 OF EVERY CYCLE WITH 7 DAY PAUSE
     Route: 048
     Dates: start: 20140909, end: 20150421
  4. AVASTIN [Suspect]
     Active Substance: BEVACIZUMAB
     Indication: Colorectal cancer metastatic
     Dosage: MOST RECENT DOSE PRIOR TO EVENT: ??03-FEB-2015
     Route: 042
     Dates: start: 20150203, end: 20150407
  5. AVASTIN [Suspect]
     Active Substance: BEVACIZUMAB
     Dosage: DAILY DOSE: 473 MG EVERY 3 WEEKS
     Route: 042
     Dates: start: 20141111
  6. AVASTIN [Suspect]
     Active Substance: BEVACIZUMAB
     Dosage: MOST RECENT DOSE PRIOR TO EVENT: 11/NOV/2014.
     Route: 042
     Dates: start: 20140909, end: 20141111
  7. AVASTIN [Suspect]
     Active Substance: BEVACIZUMAB
     Dosage: DAILY DOSE: 428 MILLIGRAM(S) EVERY 3 WEEKS
     Route: 042
     Dates: start: 20150317
  8. IRINOTECAN [Suspect]
     Active Substance: IRINOTECAN
     Indication: Colorectal cancer metastatic
     Dosage: DAILY DOSE: 300 MG EVERY 3 WEEKS??STARTED ON: 03-FEB-2015
     Route: 042
     Dates: end: 20150407
  9. AMLODIPINE BESYLATE [Concomitant]
     Active Substance: AMLODIPINE BESYLATE
     Indication: Product used for unknown indication
     Dosage: DAILY DOSE: 5 MG MILLGRAM(S) EVERY DAYS
  10. APLONA [Concomitant]
     Indication: Diarrhoea
     Route: 048
  11. DEXAMETHASONE [Concomitant]
     Active Substance: DEXAMETHASONE
     Indication: Product used for unknown indication
     Dosage: DAILY DOSE: 8 MG MILLGRAM(S) EVERY DAYS
  12. HERBALS [Concomitant]
     Active Substance: HERBALS
     Indication: Product used for unknown indication
     Dosage: WITH MEALS 30GTT (30 DROPS OF A LIQUID MEDICATION ALONG WITH YOUR MEALS)
     Route: 048
  13. LEVOTHYROXINE SODIUM [Concomitant]
     Active Substance: LEVOTHYROXINE SODIUM
     Indication: Product used for unknown indication
     Dosage: DAILY DOSE: 100 MICROGRAM(S) EVERY DAYS
  14. POLYETHYLENE GLYCOLS [Concomitant]
     Active Substance: POLYETHYLENE GLYCOLS
     Indication: Constipation
     Route: 048
  15. METOCLOPRAMIDE [Concomitant]
     Active Substance: METOCLOPRAMIDE
     Indication: Product used for unknown indication
     Dosage: DAILY DOSE: 30 MG MILLGRAM(S) EVERY DAYS
  16. ONDANSETRON [Concomitant]
     Active Substance: ONDANSETRON
     Indication: Product used for unknown indication
     Dosage: DAILY DOSE: 16 MG MILLGRAM(S) EVERY DAYS
  17. OXYBUTYNIN [Concomitant]
     Active Substance: OXYBUTYNIN
     Indication: Product used for unknown indication
     Dosage: DAILY DOSE: 5 MG MILLGRAM(S) EVERY DAYS
  18. PANTOPRAZOLE SODIUM [Concomitant]
     Active Substance: PANTOPRAZOLE SODIUM
     Indication: Product used for unknown indication
     Dosage: DAILY DOSE: 40 MG MILLGRAM(S) EVERY DAYS
  19. RAMIPRIL [Concomitant]
     Active Substance: RAMIPRIL
     Indication: Hypertension
     Dosage: DAILY DOSE: 10 MG MILLGRAM(S) EVERY DAYS
     Route: 048
  20. SIMVASTATIN [Concomitant]
     Active Substance: SIMVASTATIN
     Indication: Product used for unknown indication
     Dosage: DAILY DOSE: 20 MG MILLGRAM(S) EVERY DAYS
  21. NALOXONE HYDROCHLORIDE\OXYCODONE HYDROCHLORIDE [Concomitant]
     Active Substance: NALOXONE HYDROCHLORIDE\OXYCODONE HYDROCHLORIDE
     Indication: Product used for unknown indication
     Dosage: 20/10 MG

REACTIONS (13)
  - General physical health deterioration [Fatal]
  - Nausea [Recovered/Resolved]
  - Nausea [Recovered/Resolved]
  - Abdominal pain [Recovered/Resolved]
  - Pain [Recovered/Resolved]
  - Vertigo [Recovered/Resolved]
  - Disease progression [Unknown]
  - Gastritis [Recovered/Resolved]
  - Asthenia [Recovered/Resolved]
  - Pulmonary embolism [Recovering/Resolving]
  - Subileus [Recovered/Resolved]
  - Diarrhoea [Recovered/Resolved]
  - Asthenia [Recovering/Resolving]

NARRATIVE: CASE EVENT DATE: 20141124
